FAERS Safety Report 5615506-7 (Version None)
Quarter: 2008Q1

REPORT INFORMATION
  Report Type: 
  Country: None (occurrence: None)
  Receive Date: 20080206
  Receipt Date: 20080205
  Transmission Date: 20080703
  Serious: Yes (Other)
  Sender: FDA-Public Use
  Company Number: A0697427A

PATIENT
  Age: 60 Year
  Sex: Female

DRUGS (1)
  1. ALLI [Suspect]
     Indication: WEIGHT CONTROL
     Route: 048
     Dates: start: 20071126, end: 20071202

REACTIONS (5)
  - FAECES DISCOLOURED [None]
  - GASTROENTERITIS VIRAL [None]
  - HEADACHE [None]
  - MELAENA [None]
  - STEATORRHOEA [None]
